FAERS Safety Report 17863609 (Version 1)
Quarter: 2020Q2

REPORT INFORMATION
  Report Type: Spontaneous
  Country: US (occurrence: US)
  Receive Date: 20200605
  Receipt Date: 20200605
  Transmission Date: 20200714
  Serious: Yes (Other)
  Sender: FDA-Public Use
  Company Number: US-AMGEN-USASP2020087317

PATIENT
  Age: 50 Year
  Sex: Male
  Weight: 82 kg

DRUGS (3)
  1. MVASI [Suspect]
     Active Substance: BEVACIZUMAB-AWWB
     Dosage: 100MG/4ML
     Route: 065
  2. MVASI [Suspect]
     Active Substance: BEVACIZUMAB-AWWB
     Dosage: 400MG/16ML
     Route: 065
  3. MVASI [Suspect]
     Active Substance: BEVACIZUMAB-AWWB
     Indication: COLON CANCER
     Dosage: 450 MILLIGRAM
     Route: 065
     Dates: start: 202002

REACTIONS (5)
  - Haemorrhoids [Not Recovered/Not Resolved]
  - Anal fissure [Not Recovered/Not Resolved]
  - Epistaxis [Not Recovered/Not Resolved]
  - Haemorrhage [Not Recovered/Not Resolved]
  - Off label use [Unknown]

NARRATIVE: CASE EVENT DATE: 2020
